FAERS Safety Report 5957403-3 (Version None)
Quarter: 2008Q4

REPORT INFORMATION
  Report Type: 
  Country: None (occurrence: None)
  Receive Date: 20081118
  Receipt Date: 20081105
  Transmission Date: 20090506
  Serious: Yes (Death, Other)
  Sender: FDA-Public Use
  Company Number: US-MERCK-0811USA01181

PATIENT
  Age: 3 Month
  Sex: Female

DRUGS (5)
  1. ASPARAGINASE (AS DRUG) [Suspect]
     Indication: ACUTE LYMPHOCYTIC LEUKAEMIA
     Route: 065
  2. VINCRISTINE SULFATE [Suspect]
     Indication: ACUTE LYMPHOCYTIC LEUKAEMIA
     Route: 065
  3. DAUNORUBICIN [Suspect]
     Indication: ACUTE LYMPHOCYTIC LEUKAEMIA
     Route: 065
  4. DECADRON [Suspect]
     Indication: ACUTE LYMPHOCYTIC LEUKAEMIA
     Route: 065
  5. METHOTREXATE [Suspect]
     Route: 065

REACTIONS (9)
  - ACUTE LYMPHOCYTIC LEUKAEMIA [None]
  - CLOSTRIDIUM DIFFICILE COLITIS [None]
  - DRUG TOXICITY [None]
  - GRAFT VERSUS HOST DISEASE [None]
  - HEPATORENAL FAILURE [None]
  - INTERSTITIAL LUNG DISEASE [None]
  - MUCOSAL INFLAMMATION [None]
  - PERINEAL PAIN [None]
  - PSEUDOMONAL SEPSIS [None]
